FAERS Safety Report 5837798-1 (Version None)
Quarter: 2008Q3

REPORT INFORMATION
  Report Type: 
  Country: None (occurrence: None)
  Receive Date: 20080806
  Receipt Date: 20080721
  Transmission Date: 20090109
  Serious: Yes (Hospitalization)
  Sender: FDA-Public Use
  Company Number: 8033323

PATIENT
  Sex: Female
  Weight: 77.27 kg

DRUGS (10)
  1. KEPPRA [Suspect]
     Indication: CONVULSION
     Dosage: 500 MG 3/D PO
     Route: 048
  2. KEPPRA [Suspect]
     Indication: CONVULSION
     Dosage: 750 MG 2/D PO
     Route: 048
  3. DILANTIN [Concomitant]
  4. TAMSULOSIN HCL [Concomitant]
  5. HYDROCHLOROTHIAZIDE [Concomitant]
  6. LISINOPRIL [Concomitant]
  7. PROGESTERONE [Concomitant]
  8. OMEPRAZOLE [Concomitant]
  9. SIMVASTATIN [Concomitant]
  10. COUGH SYRUP [Concomitant]

REACTIONS (8)
  - AGGRESSION [None]
  - CONFUSIONAL STATE [None]
  - CONVULSION [None]
  - COORDINATION ABNORMAL [None]
  - FATIGUE [None]
  - MEMORY IMPAIRMENT [None]
  - SOMNOLENCE [None]
  - SWOLLEN TONGUE [None]
